FAERS Safety Report 19591041 (Version 2)
Quarter: 2022Q1

REPORT INFORMATION
  Report Type: Spontaneous
  Country: GB (occurrence: GB)
  Receive Date: 20210721
  Receipt Date: 20220217
  Transmission Date: 20220423
  Serious: Yes (Death, Life-Threatening, Other)
  Sender: FDA-Public Use
  Company Number: None

PATIENT
  Age: 62 Year
  Sex: Male

DRUGS (8)
  1. AMOXICILLIN\CLAVULANATE POTASSIUM [Suspect]
     Active Substance: AMOXICILLIN\CLAVULANATE POTASSIUM
     Indication: Pneumonia
     Dosage: 1.2 G
     Route: 042
     Dates: start: 20210607, end: 20210607
  2. ACETYLCYSTEINE [Concomitant]
     Active Substance: ACETYLCYSTEINE
     Indication: Ill-defined disorder
     Dosage: UNK
     Route: 065
     Dates: start: 2020
  3. COCODAMOL [Concomitant]
     Active Substance: ACETAMINOPHEN\CODEINE PHOSPHATE
     Indication: Ill-defined disorder
     Dosage: UNK
     Route: 065
     Dates: start: 2013
  4. GABAPENTIN [Concomitant]
     Active Substance: GABAPENTIN
     Indication: Ill-defined disorder
     Dosage: UNK
     Route: 065
     Dates: start: 2017
  5. ALBUTEROL [Concomitant]
     Active Substance: ALBUTEROL
     Indication: Ill-defined disorder
     Dosage: UNK
     Route: 065
     Dates: start: 2016
  6. PREDNISOLONE [Concomitant]
     Active Substance: PREDNISOLONE
     Indication: Product used for unknown indication
     Dosage: UNK
     Route: 065
  7. IPRATROPIUM [Concomitant]
     Active Substance: IPRATROPIUM
     Indication: Product used for unknown indication
     Dosage: UNK
     Route: 065
  8. AMITRIPTYLINE [Concomitant]
     Active Substance: AMITRIPTYLINE
     Indication: Product used for unknown indication
     Dosage: UNK
     Route: 065
     Dates: start: 2012

REACTIONS (6)
  - Anaphylactic reaction [Fatal]
  - Cerebral artery thrombosis [Fatal]
  - Hypoxic-ischaemic encephalopathy [Fatal]
  - Cardiac arrest [Fatal]
  - Myocardial infarction [Fatal]
  - Intestinal ischaemia [Unknown]

NARRATIVE: CASE EVENT DATE: 20210607
